FAERS Safety Report 5786708-4 (Version None)
Quarter: 2008Q2

REPORT INFORMATION
  Report Type: 
  Country: None (occurrence: None)
  Receive Date: 20080624
  Receipt Date: 20080613
  Transmission Date: 20081010
  Serious: Yes (Other)
  Sender: FDA-Public Use
  Company Number: MY-MERCK-0805MYS00018

PATIENT
  Age: 60 Year
  Sex: Female

DRUGS (8)
  1. JANUVIA [Suspect]
     Indication: TYPE 2 DIABETES MELLITUS
     Route: 048
     Dates: start: 20080401, end: 20080501
  2. JANUVIA [Suspect]
     Route: 048
     Dates: start: 20080601, end: 20080601
  3. JANUVIA [Suspect]
     Route: 048
     Dates: start: 20080601
  4. METFORMIN HYDROCHLORIDE [Concomitant]
     Indication: TYPE 2 DIABETES MELLITUS
     Route: 048
     Dates: start: 20071212, end: 20080501
  5. METFORMIN HYDROCHLORIDE [Concomitant]
     Route: 048
     Dates: start: 20080601, end: 20080601
  6. HYDROCHLOROTHIAZIDE AND VALSARTAN [Concomitant]
     Indication: HYPERTENSION
     Route: 048
  7. VALPROATE SODIUM [Concomitant]
     Indication: EPILEPSY
     Route: 065
     Dates: start: 20080501
  8. VALPROATE SODIUM [Concomitant]
     Route: 065
     Dates: start: 20070101, end: 20080101

REACTIONS (3)
  - DRUG INEFFECTIVE [None]
  - EPILEPSY [None]
  - HYPOGLYCAEMIA [None]
